FAERS Safety Report 7245741-6 (Version None)
Quarter: 2011Q1

REPORT INFORMATION
  Report Type: 
  Country: None (occurrence: None)
  Receive Date: 20110126
  Receipt Date: 20110114
  Transmission Date: 20110831
  Serious: Yes (Hospitalization)
  Sender: FDA-Public Use
  Company Number: US-ACTELION-A-NJ2010-41000

PATIENT

DRUGS (2)
  1. BOSENTAN TABLET 125 MG US [Suspect]
     Indication: PULMONARY ARTERIAL HYPERTENSION
     Dosage: 125 MG, BID
     Route: 048
     Dates: start: 20100519, end: 20101101
  2. WARFARIN [Concomitant]

REACTIONS (7)
  - FATIGUE [None]
  - PLEURAL EFFUSION [None]
  - DIZZINESS [None]
  - OEDEMA PERIPHERAL [None]
  - DYSPNOEA [None]
  - GANGRENE [None]
  - INTESTINAL HAEMORRHAGE [None]
